FAERS Safety Report 5799566-9 (Version None)
Quarter: 2008Q3

REPORT INFORMATION
  Report Type: 
  Country: None (occurrence: None)
  Receive Date: 20080701
  Receipt Date: 20080701
  Transmission Date: 20090109
  Serious: Yes (Hospitalization, Disabling)
  Sender: FDA-Public Use
  Company Number: None

PATIENT
  Age: 33 Year
  Sex: Female
  Weight: 104.3273 kg

DRUGS (3)
  1. BYETTA [Suspect]
     Indication: TYPE 2 DIABETES MELLITUS
     Dosage: 10 MCG BID SQ
     Route: 058
     Dates: start: 20080101, end: 20080301
  2. LISINOPRIL [Concomitant]
  3. METFORMIN [Concomitant]

REACTIONS (5)
  - ABDOMINAL PAIN [None]
  - CHOLECYSTECTOMY [None]
  - DYSPEPSIA [None]
  - STOMACH DISCOMFORT [None]
  - VOMITING [None]
